FAERS Safety Report 5066349-7 (Version None)
Quarter: 2006Q3

REPORT INFORMATION
  Report Type: 
  Country: None (occurrence: None)
  Receive Date: 20060801
  Receipt Date: 20060712
  Transmission Date: 20061208
  Serious: Yes (Death)
  Sender: FDA-Public Use
  Company Number: PHBS2006JP10460

PATIENT
  Age: 36 Year
  Sex: Male

DRUGS (3)
  1. CELLCEPT [Suspect]
     Indication: STEM CELL TRANSPLANT
  2. METHYLPREDNISOLONE [Suspect]
     Indication: STEM CELL TRANSPLANT
  3. CYCLOSPORINE [Suspect]
     Indication: STEM CELL TRANSPLANT
     Route: 065

REACTIONS (5)
  - ARRHYTHMIA [None]
  - CARDIAC FAILURE [None]
  - MULTI-ORGAN FAILURE [None]
  - PNEUMONIA [None]
  - RESPIRATORY DISORDER [None]
